FAERS Safety Report 6826996-6 (Version None)
Quarter: 2010Q3

REPORT INFORMATION
  Report Type: 
  Country: None (occurrence: None)
  Receive Date: 20100709
  Receipt Date: 20100628
  Transmission Date: 20110219
  Serious: Yes (Other)
  Sender: FDA-Public Use
  Company Number: US-PFIZER INC-2010061169

PATIENT
  Sex: Female

DRUGS (3)
  1. NEURONTIN [Suspect]
     Indication: TRIGEMINAL NEURALGIA
     Dosage: 1800 MG, UNK
     Dates: start: 20040901
  2. NEURONTIN [Suspect]
     Indication: INJURY
  3. GABAPENTIN [Suspect]
     Dosage: UNK

REACTIONS (6)
  - FACIAL PAIN [None]
  - HYPOKINESIA [None]
  - INTENTIONAL DRUG MISUSE [None]
  - MALAISE [None]
  - NERVOUS SYSTEM DISORDER [None]
  - SWELLING FACE [None]
